FAERS Safety Report 5249547-9 (Version None)
Quarter: 2007Q1

REPORT INFORMATION
  Report Type: 
  Country: None (occurrence: None)
  Receive Date: 20070228
  Receipt Date: 20060209
  Transmission Date: 20070707
  Serious: No
  Sender: FDA-Public Use
  Company Number: US-GLAXOSMITHKLINE-A0593055A

PATIENT
  Age: 50 Year
  Sex: Male

DRUGS (6)
  1. IMITREX [Suspect]
     Indication: MIGRAINE
     Dosage: 6MG UNKNOWN
     Route: 058
     Dates: start: 20050306
  2. PERCOCET [Concomitant]
  3. DIAZEPAM [Concomitant]
  4. SKELAXIN [Concomitant]
  5. PROPRANOLOL [Concomitant]
  6. DEPAKOTE [Concomitant]

REACTIONS (4)
  - INJECTION SITE BRUISING [None]
  - PHARMACEUTICAL PRODUCT COMPLAINT [None]
  - SKIN LACERATION [None]
  - URTICARIA [None]
